FAERS Safety Report 7554991-0 (Version None)
Quarter: 2011Q2

REPORT INFORMATION
  Report Type: 
  Country: None (occurrence: None)
  Receive Date: 20110617
  Receipt Date: 20110614
  Transmission Date: 20111010
  Serious: Yes (Hospitalization)
  Sender: FDA-Public Use
  Company Number: FR-PFIZER INC-2011129446

PATIENT
  Age: 14 Month
  Sex: Male

DRUGS (1)
  1. PEDIATRIC ADVIL [Suspect]
     Indication: PYREXIA
     Dosage: 1 DF, 3X/DAY
     Route: 048
     Dates: start: 20110530, end: 20110530

REACTIONS (3)
  - IMPETIGO [None]
  - DEHYDRATION [None]
  - INFECTION SUSCEPTIBILITY INCREASED [None]
